FAERS Safety Report 16481907 (Version 1)
Quarter: 2019Q2

REPORT INFORMATION
  Report Type: Report from Study
  Country: FR (occurrence: FR)
  Receive Date: 20190627
  Receipt Date: 20190627
  Transmission Date: 20190711
  Serious: Yes (Disabling)
  Sender: FDA-Public Use
  Company Number: FR-B.I. PHARMACEUTICALS,INC./RIDGEFIELD-2019-BI-027485

PATIENT
  Age: 84 Year
  Sex: Male
  Weight: 53 kg

DRUGS (1)
  1. PRADAXA [Suspect]
     Active Substance: DABIGATRAN ETEXILATE MESYLATE
     Indication: ATRIAL FIBRILLATION
     Dosage: DAILY DOSE: 220
     Route: 048
     Dates: start: 20170522

REACTIONS (1)
  - Vascular dementia [Recovered/Resolved with Sequelae]

NARRATIVE: CASE EVENT DATE: 20171211
